FAERS Safety Report 6081786-X (Version None)
Quarter: 2009Q1

REPORT INFORMATION
  Report Type: 
  Country: None (occurrence: None)
  Receive Date: 20090218
  Receipt Date: 20090205
  Transmission Date: 20090719
  Serious: Yes (Death)
  Sender: FDA-Public Use
  Company Number: JP-ABBOTT-08P-087-0494795-00

PATIENT
  Age: 49 Year
  Sex: Male

DRUGS (8)
  1. LEUPROLIDE ACETATE [Suspect]
     Indication: PROSTATE CANCER STAGE IV
     Route: 058
     Dates: start: 20061127, end: 20080414
  2. LEUPROLIDE ACETATE [Suspect]
     Dates: start: 20061030, end: 20061030
  3. CASODEX [Concomitant]
     Indication: PROSTATE CANCER STAGE IV
     Route: 048
     Dates: end: 20070410
  4. FLUTAMIDE [Concomitant]
     Indication: PROSTATE CANCER STAGE IV
     Route: 048
     Dates: start: 20070611, end: 20070903
  5. ESTRAMUSTINE PHOSPHATE SODIUM [Concomitant]
     Indication: PROSTATE CANCER STAGE IV
     Route: 048
     Dates: start: 20071029, end: 20071226
  6. DECADRON [Concomitant]
     Indication: PROSTATE CANCER STAGE IV
     Route: 048
     Dates: start: 20080121
  7. EBRANTIL [Concomitant]
     Indication: DYSURIA
     Route: 048
     Dates: end: 20071226
  8. POLLAKISU [Concomitant]
     Indication: POLLAKIURIA
     Route: 048
     Dates: end: 20071226

REACTIONS (1)
  - PROSTATE CANCER [None]
